FAERS Safety Report 8592658-0 (Version None)
Quarter: 2012Q3

REPORT INFORMATION
  Report Type: 
  Country: None (occurrence: None)
  Receive Date: 20120814
  Receipt Date: 20120808
  Transmission Date: 20120928
  Serious: Yes (Life-Threatening, Other)
  Sender: FDA-Public Use
  Company Number: JP-ASTRAZENECA-2012SE56672

PATIENT
  Age: 38 Year
  Sex: Female

DRUGS (7)
  1. FENTANYL [Concomitant]
     Indication: MAINTENANCE OF ANAESTHESIA
  2. DIPRIVAN [Suspect]
     Indication: INDUCTION OF ANAESTHESIA
     Route: 042
  3. REMIFENTANIL HYDROCHLORIDE [Concomitant]
     Indication: MAINTENANCE OF ANAESTHESIA
  4. DIPRIVAN [Suspect]
     Indication: GENERAL ANAESTHESIA
     Route: 042
  5. FENTANYL [Concomitant]
     Indication: INDUCTION OF ANAESTHESIA
  6. ROCURONIUM BROMIDE [Concomitant]
     Indication: INDUCTION OF ANAESTHESIA
  7. SEVOFLURANE [Concomitant]
     Indication: MAINTENANCE OF ANAESTHESIA

REACTIONS (3)
  - VENTRICULAR EXTRASYSTOLES [None]
  - SUPRAVENTRICULAR EXTRASYSTOLES [None]
  - BRADYCARDIA [None]
